FAERS Safety Report 7248881-0 (Version None)
Quarter: 2011Q1

REPORT INFORMATION
  Report Type: 
  Country: None (occurrence: None)
  Receive Date: 20110128
  Receipt Date: 20100708
  Transmission Date: 20110831
  Serious: Yes (Hospitalization, Other)
  Sender: FDA-Public Use
  Company Number: US-BAYER-200927882NA

PATIENT
  Sex: Female
  Weight: 95 kg

DRUGS (7)
  1. ZOLOFT [Concomitant]
     Indication: ANXIETY
     Dates: start: 20061101, end: 20100415
  2. IBUPROFEN [Concomitant]
     Dates: start: 20070604
  3. DARVOCET [Concomitant]
     Indication: PAIN
     Dates: start: 20070606, end: 20080215
  4. YASMIN [Suspect]
     Dosage: UNK
     Dates: start: 20040901, end: 20070802
  5. ZITHROMAX [Concomitant]
     Indication: BRONCHITIS
     Dates: start: 20070731
  6. PRILOSEC [Concomitant]
     Indication: GASTROOESOPHAGEAL REFLUX DISEASE
     Dates: start: 20020101
  7. TESSALON [Concomitant]
     Indication: PULMONARY EMBOLISM
     Dates: start: 20070731

REACTIONS (8)
  - MUSCLE SPASMS [None]
  - HYPOXIA [None]
  - PULMONARY INFARCTION [None]
  - PULMONARY EMBOLISM [None]
  - INJURY [None]
  - DYSPNOEA [None]
  - PAIN [None]
  - NON-CARDIAC CHEST PAIN [None]
